FAERS Safety Report 13357942 (Version 1)
Quarter: 2017Q1

REPORT INFORMATION
  Report Type: Spontaneous
  Country: US (occurrence: US)
  Receive Date: 20170322
  Receipt Date: 20170322
  Transmission Date: 20170429
  Serious: No
  Sender: FDA-Public Use
  Company Number: US-PFIZER INC-2017119905

PATIENT
  Age: 56 Year
  Sex: Male
  Weight: 103 kg

DRUGS (1)
  1. LYRICA [Suspect]
     Active Substance: PREGABALIN
     Indication: RESTLESS LEGS SYNDROME
     Dosage: 300 MG, DAILY (TWO AT NIGHT)
     Route: 048

REACTIONS (1)
  - Drug ineffective for unapproved indication [Unknown]
